FAERS Safety Report 15487514 (Version 1)
Quarter: 2018Q4

REPORT INFORMATION
  Report Type: Report from Study
  Country: US (occurrence: US)
  Receive Date: 20181011
  Receipt Date: 20181011
  Transmission Date: 20190205
  Serious: No
  Sender: FDA-Public Use
  Company Number: PHEH2018US042387

PATIENT
  Sex: Male

DRUGS (1)
  1. ZORTRESS [Suspect]
     Active Substance: EVEROLIMUS
     Indication: TRANSPLANT
     Dosage: 1 MG, BID
     Route: 048
     Dates: start: 201808, end: 20180901

REACTIONS (3)
  - Rash [Recovering/Resolving]
  - Oral herpes [Unknown]
  - Drug hypersensitivity [Recovering/Resolving]
